FAERS Safety Report 6243594-6 (Version None)
Quarter: 2009Q2

REPORT INFORMATION
  Report Type: 
  Country: None (occurrence: None)
  Receive Date: 20090624
  Receipt Date: 20090612
  Transmission Date: 20091009
  Serious: Yes (Other)
  Sender: FDA-Public Use
  Company Number: CN-PFIZER INC-2009228923

PATIENT
  Age: 34 Year

DRUGS (3)
  1. VIAGRA [Suspect]
     Indication: PULMONARY HYPERTENSION
     Dosage: 25 MG, 3X/DAY
     Route: 048
     Dates: start: 20090315
  2. WARFARIN [Concomitant]
     Dosage: UNK
     Route: 048
  3. DIGOXIN [Concomitant]
     Dosage: UNK
     Route: 048

REACTIONS (1)
  - HENOCH-SCHONLEIN PURPURA [None]
